FAERS Safety Report 14192428 (Version 1)
Quarter: 2017Q4

REPORT INFORMATION
  Report Type: Spontaneous
  Country: US (occurrence: US)
  Receive Date: 20171115
  Receipt Date: 20171115
  Transmission Date: 20180321
  Serious: No
  Sender: FDA-Public Use
  Company Number: US-ALLERGAN-1731745US

PATIENT
  Sex: Female

DRUGS (2)
  1. LO LOESTRIN FE [Suspect]
     Active Substance: ETHINYL ESTRADIOL\NORETHINDRONE ACETATE
     Indication: CONTRACEPTION
     Dosage: 10 ?G, UNK
     Route: 065
     Dates: start: 201703, end: 20170725
  2. LO LOESTRIN FE [Suspect]
     Active Substance: ETHINYL ESTRADIOL\NORETHINDRONE ACETATE
     Indication: MENSTRUAL CYCLE MANAGEMENT

REACTIONS (4)
  - Aphthous ulcer [Not Recovered/Not Resolved]
  - Amenorrhoea [Unknown]
  - Off label use [Unknown]
  - Drug ineffective for unapproved indication [Unknown]
